FAERS Safety Report 19078529 (Version 1)
Quarter: 2021Q1

REPORT INFORMATION
  Report Type: Spontaneous
  Country: US (occurrence: US)
  Receive Date: 20210331
  Receipt Date: 20210331
  Transmission Date: 20210420
  Serious: Yes (Other)
  Sender: FDA-Public Use
  Company Number: US-GLAXOSMITHKLINE-US2021GSK067267

PATIENT
  Sex: Female

DRUGS (12)
  1. RANITIDINE. [Suspect]
     Active Substance: RANITIDINE
     Indication: ABDOMINAL DISCOMFORT
     Dosage: 300 MG ,BID
     Route: 065
     Dates: start: 198501, end: 201012
  2. RANITIDINE CAPSULE [Suspect]
     Active Substance: RANITIDINE
     Indication: DYSPEPSIA
     Dosage: 150 MG ,BID
     Route: 065
     Dates: start: 198501, end: 201012
  3. ZANTAC [Suspect]
     Active Substance: RANITIDINE HYDROCHLORIDE
     Indication: ABDOMINAL DISCOMFORT
     Dosage: 300 MG,BID
     Route: 065
     Dates: start: 1985, end: 2010
  4. RANITIDINE. [Suspect]
     Active Substance: RANITIDINE
     Indication: DYSPEPSIA
     Dosage: 150 MG,BID
     Route: 065
     Dates: start: 198501, end: 201012
  5. RANITIDINE. [Suspect]
     Active Substance: RANITIDINE
     Indication: DYSPEPSIA
     Dosage: 150 MG ,BID
     Route: 065
     Dates: start: 198501, end: 201012
  6. RANITIDINE. [Suspect]
     Active Substance: RANITIDINE
     Indication: ABDOMINAL DISCOMFORT
     Dosage: 300 MG ,BID
     Route: 065
     Dates: start: 198501, end: 201012
  7. RANITIDINE. [Suspect]
     Active Substance: RANITIDINE
     Indication: DYSPEPSIA
     Dosage: 150 MG ,BID
     Route: 065
     Dates: start: 198501, end: 201012
  8. ZANTAC [Suspect]
     Active Substance: RANITIDINE HYDROCHLORIDE
     Indication: DYSPEPSIA
     Dosage: 150 MG, BID
     Route: 065
     Dates: start: 1985, end: 2010
  9. ZANTAC [Suspect]
     Active Substance: RANITIDINE HYDROCHLORIDE
     Indication: ABDOMINAL DISCOMFORT
     Dosage: 300 MG,BID
     Route: 065
     Dates: start: 1985, end: 2010
  10. RANITIDINE CAPSULE [Suspect]
     Active Substance: RANITIDINE
     Indication: ABDOMINAL DISCOMFORT
     Dosage: 300 MG, BID
     Route: 065
     Dates: start: 198501, end: 201012
  11. ZANTAC [Suspect]
     Active Substance: RANITIDINE HYDROCHLORIDE
     Indication: DYSPEPSIA
     Dosage: 150 MG, BID
     Route: 065
     Dates: start: 1985, end: 2010
  12. RANITIDINE. [Suspect]
     Active Substance: RANITIDINE
     Indication: ABDOMINAL DISCOMFORT
     Dosage: 300 MG, BID
     Route: 065
     Dates: start: 198501, end: 201012

REACTIONS (1)
  - Breast cancer [Unknown]
